FAERS Safety Report 19670258 (Version 1)
Quarter: 2021Q3

REPORT INFORMATION
  Report Type: Spontaneous
  Country: US (occurrence: US)
  Receive Date: 20210806
  Receipt Date: 20210806
  Transmission Date: 20211014
  Serious: Yes (Other)
  Sender: FDA-Public Use
  Company Number: US-SAOL THERAPEUTICS-2021SAO00108

PATIENT
  Age: 40 Year
  Sex: Male
  Weight: 75.28 kg

DRUGS (2)
  1. LIORESAL [Suspect]
     Active Substance: BACLOFEN
     Indication: SPINAL CORD INJURY
     Dosage: 259 ?G, \DAY
     Route: 037
     Dates: start: 2021
  2. LIORESAL [Suspect]
     Active Substance: BACLOFEN
     Indication: MUSCLE SPASTICITY
     Dosage: 1078 ?G, \DAY
     Route: 037
     Dates: end: 2021

REACTIONS (2)
  - Complication associated with device [Recovered/Resolved]
  - Therapy non-responder [Recovered/Resolved]

NARRATIVE: CASE EVENT DATE: 20201103
